FAERS Safety Report 5329732-8 (Version None)
Quarter: 2007Q2

REPORT INFORMATION
  Report Type: 
  Country: None (occurrence: None)
  Receive Date: 20070515
  Receipt Date: 20070504
  Transmission Date: 20071010
  Serious: Yes (Hospitalization, Other)
  Sender: FDA-Public Use
  Company Number: GXKR2007NL04095

PATIENT
  Age: 62 Year
  Sex: Male
  Weight: 77 kg

DRUGS (4)
  1. METFORMIN HYDROCHLORIDE [Suspect]
     Indication: DIABETES MELLITUS
     Dosage: 850 MG, QD, ORAL
     Route: 048
     Dates: start: 20030101
  2. ROSIGLITAZONE [Suspect]
     Indication: DIABETES MELLITUS
     Dosage: 4 MG, QD, ORAL
     Route: 048
     Dates: start: 20060601
  3. GLIMEPIRIDE [Suspect]
     Indication: DIABETES MELLITUS
     Dosage: 6 MG, TID, ORAL
     Route: 048
     Dates: start: 20010101
  4. CRESTOR [Concomitant]

REACTIONS (8)
  - DEPRESSION [None]
  - MALAISE [None]
  - MUSCLE SPASMS [None]
  - NIGHT SWEATS [None]
  - PARAESTHESIA [None]
  - SLEEP DISORDER [None]
  - TACHYPNOEA [None]
  - VENTRICULAR FIBRILLATION [None]
